FAERS Safety Report 14927536 (Version 3)
Quarter: 2018Q4

REPORT INFORMATION
  Report Type: Spontaneous
  Country: JP (occurrence: JP)
  Receive Date: 20180523
  Receipt Date: 20181025
  Transmission Date: 20190204
  Serious: Yes (Other)
  Sender: FDA-Public Use
  Company Number: PHJP2018JP011325

PATIENT
  Age: 68 Year
  Sex: Female

DRUGS (3)
  1. TASIGNA [Suspect]
     Active Substance: NILOTINIB
     Dosage: 800 MG, UNK
     Route: 048
     Dates: start: 201609, end: 20180418
  2. TASIGNA [Suspect]
     Active Substance: NILOTINIB
     Indication: CHRONIC MYELOID LEUKAEMIA
     Dosage: 600 MG, QD
     Route: 048
  3. TASIGNA [Suspect]
     Active Substance: NILOTINIB
     Dosage: 400 MG, QD
     Route: 048
     Dates: start: 20180613

REACTIONS (6)
  - Chest discomfort [Unknown]
  - Oropharyngeal discomfort [Unknown]
  - Electrocardiogram ST segment depression [Unknown]
  - Electrocardiogram Q wave abnormal [Unknown]
  - Angina pectoris [Recovered/Resolved]
  - Arteriosclerosis coronary artery [Unknown]

NARRATIVE: CASE EVENT DATE: 201802
